FAERS Safety Report 4342745-8 (Version None)
Quarter: 2004Q2

REPORT INFORMATION
  Report Type: 
  Country: None (occurrence: None)
  Receive Date: 20040409
  Receipt Date: 20030410
  Transmission Date: 20050107
  Serious: Yes (Hospitalization)
  Sender: FDA-Public Use
  Company Number: 03P-163-0216597-00

PATIENT
  Sex: Male

DRUGS (5)
  1. DEPAKOTE [Suspect]
     Dosage: 500 MG, PER ORAL
     Route: 048
     Dates: start: 20010726, end: 20010816
  2. DEPAKOTE [Suspect]
     Dosage: 500 MG, PER ORAL
     Route: 048
     Dates: start: 20010821, end: 20010825
  3. DEPAKOTE ER 500 MG (DEPAKOTE) (DIVALPROEX SODIUM) (DIVALPROEX SODIUM) [Suspect]
     Dosage: 500 MG, PER ORAL
     Route: 048
     Dates: end: 20010725
  4. DEPAKOTE ER 500 MG (DEPAKOTE) (DIVALPROEX SODIUM) (DIVALPROEX SODIUM) [Suspect]
     Dosage: 500 MG, PER ORAL
     Route: 048
     Dates: start: 20010817, end: 20010820
  5. NEFAZODONE HYDROCHLORIDE [Concomitant]

REACTIONS (6)
  - ABNORMAL BEHAVIOUR [None]
  - AGITATION [None]
  - DEPRESSION [None]
  - DISTURBANCE IN ATTENTION [None]
  - MEDICATION ERROR [None]
  - NAUSEA [None]
